FAERS Safety Report 13947502 (Version 1)
Quarter: 2017Q3

REPORT INFORMATION
  Report Type: Spontaneous
  Country: GB (occurrence: GB)
  Receive Date: 20170908
  Receipt Date: 20170908
  Transmission Date: 20171128
  Serious: Yes (Hospitalization)
  Sender: FDA-Public Use
  Company Number: GB-009507513-1709GBR002560

PATIENT
  Age: 66 Year
  Sex: Female

DRUGS (7)
  1. OCTENISAN (OCTENIDINE HYDROCHLORIDE) [Suspect]
     Active Substance: OCTENIDINE HYDROCHLORIDE
     Indication: PRODUCT USED FOR UNKNOWN INDICATION
     Dosage: DAILY DOSE UNKNOWN (UNKNOWN)
     Route: 061
  2. DEXAMETHASONE. [Suspect]
     Active Substance: DEXAMETHASONE
     Indication: PRODUCT USED FOR UNKNOWN INDICATION
     Dosage: DAILY DOSE 8 MG ( 4 MG, 2 IN 1 D)
     Route: 048
     Dates: start: 20170721
  3. PERINDOPRIL [Suspect]
     Active Substance: PERINDOPRIL
     Indication: HYPERTENSION
     Dosage: IN THE MORNING (40 MG, 1 IN 1 D)
     Route: 048
  4. INDAPAMIDE. [Suspect]
     Active Substance: INDAPAMIDE
     Indication: HYPERTENSION
     Dosage: MORNING (1.5 MG,1 IN 1 D)
  5. LEVETIRACETAM. [Suspect]
     Active Substance: LEVETIRACETAM
     Indication: EPILEPSY
     Dosage: DAILY DOSE 250 GM (125 GM,2 1N 1 D)
     Route: 048
  6. OMEPRAZOLE. [Suspect]
     Active Substance: OMEPRAZOLE
     Indication: PRODUCT USED FOR UNKNOWN INDICATION
     Dosage: DAILY DOSE UNKNOWN (40 MG)
     Route: 048
  7. LEVOTHYROXINE SODIUM. [Suspect]
     Active Substance: LEVOTHYROXINE SODIUM
     Indication: HYPOTHYROIDISM
     Dosage: DAILY DOSE 125 MICROGRAM, UNK
     Route: 048

REACTIONS (8)
  - Incorrect dose administered [None]
  - Medication error [Unknown]
  - Hypotension [Unknown]
  - Stevens-Johnson syndrome [Not Recovered/Not Resolved]
  - Dizziness [Unknown]
  - Rash [Unknown]
  - Blister [Unknown]
  - Product packaging confusion [None]

NARRATIVE: CASE EVENT DATE: 20170816
